APPROVED DRUG PRODUCT: LUDIOMIL
Active Ingredient: MAPROTILINE HYDROCHLORIDE
Strength: 75MG
Dosage Form/Route: TABLET;ORAL
Application: N017543 | Product #003
Applicant: NOVARTIS PHARMACEUTICALS CORP
Approved: Sep 30, 1982 | RLD: No | RS: No | Type: DISCN